FAERS Safety Report 17100419 (Version 1)
Quarter: 2019Q4

REPORT INFORMATION
  Report Type: Spontaneous
  Country: DE (occurrence: DE)
  Receive Date: 20191202
  Receipt Date: 20191202
  Transmission Date: 20200122
  Serious: Yes (Hospitalization, Other)
  Sender: FDA-Public Use
  Company Number: DE-MYLANLABS-2019M1115739

PATIENT
  Age: 81 Year
  Sex: Female

DRUGS (22)
  1. PREGABALIN. [Concomitant]
     Active Substance: PREGABALIN
     Dosage: 50 MG, 1-0-1-0
  2. CYANOCOBALAMIN. [Concomitant]
     Active Substance: CYANOCOBALAMIN
     Dosage: NK MG, 0-1-0-0, QD
  3. LEVOTHYROXINENATRIUM TEVA [Concomitant]
     Dosage: 100 ?G, 1-0-0-0
  4. LEVEMIR [Concomitant]
     Active Substance: INSULIN DETEMIR
     Dosage: NK MG, NK
  5. MAGNESIUM [Concomitant]
     Active Substance: MAGNESIUM
     Dosage: NK MG, 0-0-1-0
  6. ABSTRAL [Suspect]
     Active Substance: FENTANYL CITRATE
     Indication: PRODUCT USED FOR UNKNOWN INDICATION
     Dosage: 0.2 MG, BEDARF
  7. XIPAMID [Suspect]
     Active Substance: XIPAMIDE
     Indication: PRODUCT USED FOR UNKNOWN INDICATION
     Dosage: 20 MG, 0.5-0-0.5-0
  8. MOVICOL [Concomitant]
     Active Substance: POLYETHYLENE GLYCOL 3350\POTASSIUM CHLORIDE\SODIUM BICARBONATE\SODIUM CHLORIDE
     Dosage: NK MG, BEDARF
  9. TRANSTEC [Suspect]
     Active Substance: BUPRENORPHINE
     Indication: PRODUCT USED FOR UNKNOWN INDICATION
     Dosage: 52.5 ?G, WECHSEL ALLE 3D
  10. FUROSEMID                          /00032601/ [Suspect]
     Active Substance: FUROSEMIDE
     Indication: PRODUCT USED FOR UNKNOWN INDICATION
     Dosage: NK MG, 0.5-0-0-0
  11. PANTOPRAZOL                        /01263201/ [Concomitant]
     Active Substance: PANTOPRAZOLE
     Dosage: 40 MG, 1-0-1-0
  12. METAMIZOL                          /06276701/ [Concomitant]
     Active Substance: METAMIZOLE
     Dosage: 500 MG, 1-1-1-0
  13. CLONIDIN [Concomitant]
     Active Substance: CLONIDINE
     Dosage: 75 MG, 1-1-1-0
  14. LEVODOPA [Concomitant]
     Active Substance: LEVODOPA
     Dosage: 100|25 MG, 0-0-1-0, QD
  15. CLOPIDOGREL [Suspect]
     Active Substance: CLOPIDOGREL BISULFATE
     Indication: PRODUCT USED FOR UNKNOWN INDICATION
     Dosage: 75 MG, 0-1-0-0
  16. ASPIRIN. [Suspect]
     Active Substance: ASPIRIN
     Indication: PRODUCT USED FOR UNKNOWN INDICATION
     Dosage: 100 MG, 1-0-0-0
  17. GINKOBIL [Concomitant]
     Active Substance: GINKGO
     Dosage: 240 MG, 1-0-1-0
  18. NOVORAPID [Concomitant]
     Active Substance: INSULIN ASPART
     Dosage: NK MG, NACH PLAN
  19. VALSARTAN. [Concomitant]
     Active Substance: VALSARTAN
     Dosage: 80 MG, 1-0-0-0
  20. METOPROLOL. [Concomitant]
     Active Substance: METOPROLOL
     Dosage: 47.5 MG, 0.5-0-0.5-0
  21. CIPROFLOXACIN. [Concomitant]
     Active Substance: CIPROFLOXACIN
     Dosage: 250 MG, 1-0-1-0 (SEIT 23.06.2017)
  22. DIGITOXIN [Concomitant]
     Active Substance: DIGITOXIN
     Dosage: 0.07 MG, 1-0-0-0

REACTIONS (3)
  - Anaemia [Unknown]
  - Syncope [Unknown]
  - Dehydration [Unknown]
